FAERS Safety Report 11515545 (Version 6)
Quarter: 2017Q2

REPORT INFORMATION
  Report Type: Report from Study
  Country: US (occurrence: US)
  Receive Date: 20150916
  Receipt Date: 20170406
  Transmission Date: 20170829
  Serious: Yes (Hospitalization, Other)
  Sender: FDA-Public Use
  Company Number: US-ACTELION-A-NJ2013-89090

PATIENT
  Age: 31 Year
  Sex: Male

DRUGS (17)
  1. LOVENOX [Concomitant]
     Active Substance: ENOXAPARIN SODIUM
  2. METHOTREXATE. [Concomitant]
     Active Substance: METHOTREXATE
     Dosage: UNK
  3. TRACLEER [Suspect]
     Active Substance: BOSENTAN
     Indication: PULMONARY HYPERTENSION
     Dosage: 31.25 MG, QD
     Route: 048
     Dates: start: 20100729
  4. TRACLEER [Suspect]
     Active Substance: BOSENTAN
     Dosage: 62.5 MG, BID
     Route: 048
  5. HYDROXYUREA. [Suspect]
     Active Substance: HYDROXYUREA
     Indication: SICKLE CELL ANAEMIA
     Dosage: 500 MG, BID
     Route: 065
  6. COUMADIN [Concomitant]
     Active Substance: WARFARIN SODIUM
  7. MORPHINE [Concomitant]
     Active Substance: MORPHINE
     Dosage: UNK
  8. OXYCODONE [Concomitant]
     Active Substance: OXYCODONE
     Dosage: UNK
  9. TRACLEER [Suspect]
     Active Substance: BOSENTAN
     Dosage: 62.5 MG, BID
     Route: 048
     Dates: start: 20100226
  10. ALBUTEROL. [Concomitant]
     Active Substance: ALBUTEROL
  11. TRACLEER [Suspect]
     Active Substance: BOSENTAN
     Dosage: 31.25 MG, BID
     Route: 048
     Dates: start: 200807
  12. TRACLEER [Suspect]
     Active Substance: BOSENTAN
     Dosage: 31.25 MG, BID
     Route: 048
  13. EXJADE [Concomitant]
     Active Substance: DEFERASIROX
     Dosage: 100 MG, QPM
  14. SILDENAFIL. [Concomitant]
     Active Substance: SILDENAFIL
  15. HYDROCORTISONE. [Concomitant]
     Active Substance: HYDROCORTISONE
  16. ADVAIR HFA [Concomitant]
     Active Substance: FLUTICASONE PROPIONATE\SALMETEROL XINAFOATE
  17. SYMBICORT [Concomitant]
     Active Substance: BUDESONIDE\FORMOTEROL FUMARATE DIHYDRATE

REACTIONS (15)
  - Pancytopenia [Recovering/Resolving]
  - Escherichia infection [Unknown]
  - Small intestinal obstruction [Unknown]
  - Sickle cell anaemia with crisis [Unknown]
  - Constipation [Unknown]
  - Sepsis [Unknown]
  - Septic shock [Unknown]
  - Haemolytic anaemia [Unknown]
  - Pain [Unknown]
  - Polyarthritis [Unknown]
  - Pneumonia [Unknown]
  - Transfusion [Unknown]
  - Acute respiratory failure [Unknown]
  - Dyspnoea [Recovering/Resolving]
  - Pancreatitis [Unknown]

NARRATIVE: CASE EVENT DATE: 20150717
